FAERS Safety Report 5032958-4 (Version None)
Quarter: 2006Q2

REPORT INFORMATION
  Report Type: 
  Country: None (occurrence: None)
  Receive Date: 20060622
  Receipt Date: 20060620
  Transmission Date: 20061013
  Serious: Yes (Life-Threatening, Hospitalization, Disabling)
  Sender: FDA-Public Use
  Company Number: TR-SANOFI-SYNTHELABO-F01200601490

PATIENT
  Sex: Male

DRUGS (4)
  1. CALCIUM FOLINATE [Suspect]
     Dosage: 300 MG 2 X PER 2 WEEK
     Route: 042
     Dates: start: 20060424, end: 20060424
  2. FLUOROURACIL [Suspect]
     Dosage: 1600 MG 2 X PER 2 WEEK
     Route: 042
     Dates: start: 20060424, end: 20060424
  3. AVASTIN [Suspect]
     Route: 042
     Dates: start: 20060424, end: 20060424
  4. OXALIPLATIN [Suspect]
     Indication: COLORECTAL CANCER METASTATIC
     Route: 042
     Dates: start: 20060424, end: 20060424

REACTIONS (2)
  - CEREBRAL ISCHAEMIA [None]
  - PNEUMONIA [None]
